FAERS Safety Report 8200261 (Version 12)
Quarter: 2014Q2

REPORT INFORMATION
  Report Type: Report from Study
  Country: BR (occurrence: BR)
  Receive Date: 20111026
  Receipt Date: 20140411
  Transmission Date: 20141212
  Serious: Yes (Hospitalization, Disabling, Other)
  Sender: FDA-Public Use
  Company Number: BR-ROCHE-704409

PATIENT
  Age: 58 Year
  Sex: Female
  Weight: 87 kg

DRUGS (36)
  1. MABTHERA [Suspect]
     Indication: RHEUMATOID ARTHRITIS
     Route: 042
     Dates: start: 2008, end: 2008
  2. MABTHERA [Suspect]
     Route: 042
     Dates: start: 20090901, end: 20090901
  3. MABTHERA [Suspect]
     Dosage: ROUTE: ENDOVENOUS, FORM AND FREQUENCY: 2 INFUSIONS; 100 MG/10 ML
     Route: 042
     Dates: start: 20090915, end: 20091009
  4. MABTHERA [Suspect]
     Dosage: DOSAGE: 100 MG/10 ML
     Route: 042
     Dates: start: 20100825, end: 20100901
  5. MABTHERA [Suspect]
     Route: 042
  6. PREDNISONE [Suspect]
     Indication: PRODUCT USED FOR UNKNOWN INDICATION
     Route: 065
  7. PREDNISONE [Suspect]
     Route: 065
  8. PREDNISONE [Suspect]
     Route: 065
  9. PRESSOTEC [Concomitant]
     Route: 065
  10. DICLOFENAC [Concomitant]
     Indication: PAIN
     Dosage: DRUG REPORTED: BELFAREN
     Route: 065
  11. DORFLEX [Concomitant]
     Route: 065
  12. NOVALGINE [Concomitant]
     Dosage: DRUG REPORTED: NOVALGEX
     Route: 065
  13. RIVOTRIL [Concomitant]
     Route: 065
  14. TIBOLONE [Concomitant]
     Dosage: DRUG REPORTED: LIVOLON
     Route: 065
  15. TIBOLONE [Concomitant]
     Route: 065
  16. CYCLOBENZAPRINE HYDROCHLORIDE [Concomitant]
     Route: 065
  17. LANSOPRAZOLE [Concomitant]
     Route: 065
  18. FOLIC ACID [Concomitant]
     Route: 065
  19. LYRICA [Concomitant]
     Route: 065
  20. PROFENID [Concomitant]
     Dosage: FORM: ENTERIC. TRADE NAME: ARTROSIL
     Route: 065
  21. PROFENID [Concomitant]
     Route: 065
  22. ULTRACET [Concomitant]
     Route: 065
  23. FLOTAC [Concomitant]
     Route: 065
  24. TRAMADOL [Concomitant]
     Route: 065
  25. ACTONEL [Concomitant]
     Route: 065
  26. TYLENOL [Concomitant]
     Indication: PREMEDICATION
     Route: 065
  27. DRAMIN [Concomitant]
     Indication: PREMEDICATION
     Route: 065
  28. BONVIVA [Concomitant]
     Route: 065
  29. PARACETAMOL [Concomitant]
     Indication: PREMEDICATION
     Route: 065
  30. OS-CAL [Concomitant]
     Route: 065
  31. RESFEDRYL [Concomitant]
     Dosage: FREQUENCY: EVERY 6 HOUR
     Route: 065
  32. OMEPRAZOLE [Concomitant]
     Route: 065
  33. METHOTREXATE [Concomitant]
     Route: 065
  34. AMITRIPTYLINE [Concomitant]
     Route: 065
  35. CHLORHEXIDINE [Concomitant]
  36. ENALAPRIL [Concomitant]

REACTIONS (50)
  - Abasia [Recovering/Resolving]
  - Tibia fracture [Unknown]
  - Tibia fracture [Recovered/Resolved]
  - Femur fracture [Unknown]
  - Spinal disorder [Unknown]
  - Spinal pain [Unknown]
  - Weight increased [Not Recovered/Not Resolved]
  - Lower limb fracture [Recovering/Resolving]
  - Cataract [Not Recovered/Not Resolved]
  - Dysentery [Recovered/Resolved]
  - Post procedural complication [Unknown]
  - Eating disorder [Recovered/Resolved]
  - Gait disturbance [Recovering/Resolving]
  - Herpes zoster [Unknown]
  - Hypokinesia [Not Recovered/Not Resolved]
  - Pruritus [Recovered/Resolved]
  - Back pain [Not Recovered/Not Resolved]
  - Diarrhoea [Not Recovered/Not Resolved]
  - Oropharyngeal pain [Not Recovered/Not Resolved]
  - Pain [Unknown]
  - Skin exfoliation [Not Recovered/Not Resolved]
  - Arthralgia [Not Recovered/Not Resolved]
  - Swelling [Recovered/Resolved]
  - Dry mouth [Recovered/Resolved]
  - Pain in extremity [Not Recovered/Not Resolved]
  - Abdominal pain [Recovered/Resolved]
  - Nausea [Recovering/Resolving]
  - Vomiting [Recovered/Resolved]
  - Headache [Recovered/Resolved]
  - Malaise [Recovered/Resolved]
  - Formication [Recovering/Resolving]
  - Immobile [Recovering/Resolving]
  - Fatigue [Recovering/Resolving]
  - Fall [Unknown]
  - Nasopharyngitis [Recovering/Resolving]
  - Hyperhidrosis [Not Recovered/Not Resolved]
  - Dysphonia [Not Recovered/Not Resolved]
  - Abdominal distension [Unknown]
  - Breast enlargement [Unknown]
  - Hypertension [Unknown]
  - Pelvic pain [Unknown]
  - Weight increased [Unknown]
  - Osteoarthritis [Unknown]
  - Asthenia [Unknown]
  - Weight decreased [Recovered/Resolved]
  - Immunodeficiency [Unknown]
  - Ageusia [Recovered/Resolved]
  - Mucosal inflammation [Recovered/Resolved]
  - Post procedural complication [Recovered/Resolved]
  - Pain [Unknown]
